FAERS Safety Report 8748325 (Version 2)
Quarter: 2015Q1

REPORT INFORMATION
  Report Type: Report from Study
  Country: US (occurrence: US)
  Receive Date: 20120827
  Receipt Date: 20150217
  Transmission Date: 20150721
  Serious: Yes (Death)
  Sender: FDA-Public Use
  Company Number: US-ROCHE-1104300

PATIENT
  Sex: Male

DRUGS (13)
  1. AVASTIN [Suspect]
     Active Substance: BEVACIZUMAB
     Indication: LUNG NEOPLASM MALIGNANT
     Dosage: HE RECEIVED SAME DOSE OF BEVACIZUMAB ON  06/AUG/2009, 23/NOV/2009, 10/DEC/2009, 06/JAN/2010, 27/JAN/
     Route: 042
     Dates: start: 20090806
  2. BENADRYL [Concomitant]
     Active Substance: DIPHENHYDRAMINE HYDROCHLORIDE
     Indication: LUNG NEOPLASM MALIGNANT
     Route: 065
  3. XANAX [Concomitant]
     Active Substance: ALPRAZOLAM
     Route: 048
  4. SOLU-MEDROL [Concomitant]
     Active Substance: METHYLPREDNISOLONE SODIUM SUCCINATE
     Route: 042
  5. COUMADIN (UNITED STATES) [Concomitant]
  6. PALONOSETRON HYDROCHLORIDE [Concomitant]
     Active Substance: PALONOSETRON HYDROCHLORIDE
     Indication: LUNG NEOPLASM MALIGNANT
     Route: 042
  7. FOLATE [Concomitant]
     Active Substance: FOLATE SODIUM
     Route: 048
  8. ZOMETA [Concomitant]
     Active Substance: ZOLEDRONIC ACID
  9. TARCEVA [Suspect]
     Active Substance: ERLOTINIB HYDROCHLORIDE
     Indication: LUNG NEOPLASM MALIGNANT
     Route: 048
  10. ALIMTA [Concomitant]
     Active Substance: PEMETREXED DISODIUM
  11. ZANTAC [Concomitant]
     Active Substance: RANITIDINE HYDROCHLORIDE
     Route: 042
  12. DEXAMETHASONE SODIUM PHOSPHATE. [Concomitant]
     Active Substance: DEXAMETHASONE SODIUM PHOSPHATE
     Route: 042
  13. DEXAMETHASONE SODIUM PHOSPHATE. [Concomitant]
     Active Substance: DEXAMETHASONE SODIUM PHOSPHATE
     Route: 042

REACTIONS (8)
  - Wheezing [Unknown]
  - Death [Fatal]
  - Back pain [Unknown]
  - Arthralgia [Unknown]
  - Pelvic pain [Unknown]
  - Myalgia [Unknown]
  - Abdominal pain [Unknown]
  - Fatigue [Unknown]
